FAERS Safety Report 17509881 (Version 1)
Quarter: 2020Q1

REPORT INFORMATION
  Report Type: Spontaneous
  Country: US (occurrence: US)
  Receive Date: 20200306
  Receipt Date: 20200306
  Transmission Date: 20200409
  Serious: Yes (Hospitalization, Other)
  Sender: FDA-Public Use
  Company Number: US-IGSA-SR10009911

PATIENT
  Sex: Female

DRUGS (2)
  1. GAMUNEX-C [Suspect]
     Active Substance: HUMAN IMMUNOGLOBULIN G
     Dosage: 8 G, Q.WK.
     Route: 058
  2. GAMUNEX-C [Suspect]
     Active Substance: HUMAN IMMUNOGLOBULIN G
     Indication: IMMUNODEFICIENCY COMMON VARIABLE
     Dosage: 8 G, Q.WK.
     Route: 058
     Dates: start: 20190810

REACTIONS (3)
  - Cholelithiasis [Unknown]
  - Cholelithotomy [Unknown]
  - Nasopharyngitis [Recovered/Resolved]
